FAERS Safety Report 4480959-7 (Version None)
Quarter: 2004Q4

REPORT INFORMATION
  Report Type: 
  Country: None (occurrence: None)
  Receive Date: 20041021
  Receipt Date: 20041011
  Transmission Date: 20050328
  Serious: Yes (Hospitalization, Other)
  Sender: FDA-Public Use
  Company Number: US-BRISTOL-MYERS SQUIBB COMPANY-12727343

PATIENT
  Age: 45 Year
  Sex: Female

DRUGS (17)
  1. CARBOPLATIN [Suspect]
     Indication: OVARIAN CANCER
     Dosage: 1ST DOSE: 25MAR03
     Route: 042
     Dates: start: 20030514, end: 20030514
  2. PACLITAXEL [Suspect]
     Indication: OVARIAN CANCER
     Dosage: 1ST DOSE: 25MAR03
     Route: 042
     Dates: start: 20030514, end: 20030514
  3. INTERFERON GAMMA [Suspect]
     Indication: OVARIAN CANCER
     Route: 058
     Dates: start: 20030325
  4. ANAPROX [Concomitant]
     Dates: start: 20030227
  5. DARVOCET-N 100 [Concomitant]
     Dates: start: 20030227
  6. COLACE [Concomitant]
     Dates: start: 20030227
  7. BLACK COHOSH [Concomitant]
     Dates: start: 20030301
  8. MULTI-VITAMINS [Concomitant]
     Dates: start: 20030303
  9. CALCIUM [Concomitant]
     Dates: start: 20030301
  10. TYLENOL [Concomitant]
     Dates: start: 20030301
  11. IBUPROFEN [Concomitant]
     Dates: start: 20030301
  12. PREMARIN [Concomitant]
     Dates: start: 20030328
  13. DEXAMETHASONE [Concomitant]
     Dates: start: 20030324
  14. KYTRIL [Concomitant]
     Dates: start: 20030325
  15. DECADRON [Concomitant]
     Dates: start: 20030325
  16. BENADRYL [Concomitant]
     Dates: start: 20030325
  17. RANITIDINE [Concomitant]
     Dates: start: 20030325

REACTIONS (4)
  - CATHETER RELATED INFECTION [None]
  - NEUTROPENIA [None]
  - PYREXIA [None]
  - SMALL INTESTINAL OBSTRUCTION [None]
